FAERS Safety Report 8806549 (Version 1)
Quarter: 2012Q4

REPORT INFORMATION
  Report Type: Spontaneous
  Country: US (occurrence: None)
  Receive Date: 20120919
  Receipt Date: 20120919
  Transmission Date: 20130627
  Serious: No
  Sender: FDA-Public Use
  Company Number: THQ2012A08196

PATIENT
  Age: 80 Year
  Sex: Female

DRUGS (2)
  1. ACTOS (PIOGLITAZONE HYDROCHLORIDE) [Suspect]
     Route: 048
     Dates: start: 2006, end: 201111
  2. ACTOS (PIOGLITAZONE HYDROCHLORIDE) [Suspect]
     Route: 048
     Dates: start: 201112, end: 201205

REACTIONS (1)
  - Haematuria [None]
